FAERS Safety Report 17370567 (Version 2)
Quarter: 2020Q2

REPORT INFORMATION
  Report Type: Report from Study
  Country: US (occurrence: US)
  Receive Date: 20200205
  Receipt Date: 20200410
  Transmission Date: 20200713
  Serious: Yes (Other)
  Sender: FDA-Public Use
  Company Number: US-SA-2020SA029210

PATIENT
  Age: 43 Year
  Sex: Male
  Weight: 111.6 kg

DRUGS (5)
  1. NIACIN. [Concomitant]
     Active Substance: NIACIN
  2. VITAMIN B12 [Concomitant]
     Active Substance: CYANOCOBALAMIN
  3. TERIFLUNOMIDE. [Suspect]
     Active Substance: TERIFLUNOMIDE
     Indication: MULTIPLE SCLEROSIS
     Dosage: 14 MG, QD
     Route: 048
     Dates: start: 20200101
  4. BIOTIN [Concomitant]
     Active Substance: BIOTIN
     Dosage: UNK
  5. COPAXONE [Concomitant]
     Active Substance: GLATIRAMER ACETATE

REACTIONS (7)
  - Multiple sclerosis [Unknown]
  - Sinusitis [Unknown]
  - Gait disturbance [Unknown]
  - Cough [Unknown]
  - Fatigue [Unknown]
  - Limb discomfort [Unknown]
  - Dysarthria [Unknown]

NARRATIVE: CASE EVENT DATE: 202001
